FAERS Safety Report 9794624 (Version 2)
Quarter: 2014Q1

REPORT INFORMATION
  Report Type: Spontaneous
  Country: US (occurrence: US)
  Receive Date: 20140102
  Receipt Date: 20140127
  Transmission Date: 20141002
  Serious: Yes (Death)
  Sender: FDA-Public Use
  Company Number: US-GLAXOSMITHKLINE-A1055024A

PATIENT
  Age: 74 Year
  Sex: Male

DRUGS (1)
  1. VOTRIENT [Suspect]
     Indication: SOFT TISSUE CANCER
     Dosage: 800MG PER DAY
     Route: 048
     Dates: start: 20131001

REACTIONS (3)
  - Intestinal perforation [Fatal]
  - Angiosarcoma metastatic [Unknown]
  - Metastases to lymph nodes [Unknown]
